FAERS Safety Report 24947954 (Version 1)
Quarter: 2025Q1

REPORT INFORMATION
  Report Type: Spontaneous
  Country: US (occurrence: US)
  Receive Date: 20250210
  Receipt Date: 20250210
  Transmission Date: 20250409
  Serious: Yes (Life-Threatening, Other)
  Sender: ALKEM
  Company Number: US-ALKEM LABORATORIES LIMITED-US-ALKEM-2025-01092

PATIENT
  Age: 22 Year
  Sex: Female

DRUGS (1)
  1. METFORMIN HYDROCHLORIDE [Suspect]
     Active Substance: METFORMIN HYDROCHLORIDE
     Indication: Product used for unknown indication
     Route: 065

REACTIONS (18)
  - Vasoplegia syndrome [Unknown]
  - Hypopnoea [Unknown]
  - Coma scale abnormal [Unknown]
  - Hyperglycaemia [Unknown]
  - Electrocardiogram QT prolonged [Unknown]
  - Delirium [Unknown]
  - Intentional overdose [Unknown]
  - Hypotension [Unknown]
  - Lactic acidosis [Not Recovered/Not Resolved]
  - Therapy non-responder [Unknown]
  - Hypothermia [Unknown]
  - Anhidrosis [Unknown]
  - Mental status changes [Unknown]
  - Tachypnoea [Unknown]
  - Gastrointestinal sounds abnormal [Unknown]
  - Mydriasis [Unknown]
  - Flushing [Unknown]
  - Hypoglycaemia [Unknown]
